FAERS Safety Report 9238194 (Version 1)
Quarter: 2013Q2

REPORT INFORMATION
  Report Type: Report from Study
  Country: AR (occurrence: AR)
  Receive Date: 20130418
  Receipt Date: 20130418
  Transmission Date: 20140414
  Serious: Yes (Death)
  Sender: FDA-Public Use
  Company Number: PHHY2013AR037620

PATIENT
  Sex: Male

DRUGS (3)
  1. ONBREZ [Suspect]
     Indication: CHRONIC OBSTRUCTIVE PULMONARY DISEASE
     Dosage: UNK
     Dates: start: 201208
  2. ENALAPRIL [Concomitant]
  3. DIURETICS [Concomitant]

REACTIONS (3)
  - Cardiac arrest [Fatal]
  - Feeling abnormal [Unknown]
  - Somnolence [Unknown]
